FAERS Safety Report 5742010-8 (Version None)
Quarter: 2008Q2

REPORT INFORMATION
  Report Type: 
  Country: None (occurrence: None)
  Receive Date: 20080514
  Receipt Date: 20080514
  Transmission Date: 20081010
  Serious: No
  Sender: FDA-Public Use
  Company Number: None

PATIENT
  Age: 57 Year
  Sex: Female
  Weight: 68.0396 kg

DRUGS (1)
  1. CREST PRO HEALTH RINSE CREST [Suspect]
     Indication: DENTAL DISORDER PROPHYLAXIS
     Dosage: APROX. 1 OZ. 3-4 TIMES A DAY PO
     Route: 048
     Dates: start: 20080201, end: 20080510

REACTIONS (4)
  - AGEUSIA [None]
  - PARAESTHESIA ORAL [None]
  - TOOTH DISCOLOURATION [None]
  - WEIGHT DECREASED [None]
